FAERS Safety Report 5926700-X (Version None)
Quarter: 2008Q4

REPORT INFORMATION
  Report Type: 
  Country: None (occurrence: None)
  Receive Date: 20081022
  Receipt Date: 20081013
  Transmission Date: 20090506
  Serious: Yes (Hospitalization)
  Sender: FDA-Public Use
  Company Number: ES-BAYER-200828245GPV

PATIENT
  Age: 85 Year
  Sex: Female

DRUGS (6)
  1. ACTIRA [Suspect]
     Indication: PROPHYLAXIS
     Dosage: TOTAL DAILY DOSE: 400 MG  UNIT DOSE: 400 MG
     Route: 048
     Dates: start: 20080117, end: 20080130
  2. INSULATARD [Suspect]
     Indication: DIABETES MELLITUS
     Route: 058
     Dates: start: 20080117, end: 20080130
  3. URBASON [Suspect]
     Indication: CHRONIC OBSTRUCTIVE PULMONARY DISEASE
     Route: 048
     Dates: start: 20071230
  4. FUROSEMIDE [Concomitant]
     Indication: ANGINA PECTORIS
     Route: 048
  5. AAS [Concomitant]
     Indication: DRUG USE FOR UNKNOWN INDICATION
     Route: 048
  6. MINITRAN [Concomitant]
     Indication: ANGINA PECTORIS
     Route: 062

REACTIONS (1)
  - HYPOGLYCAEMIA [None]
